FAERS Safety Report 12474964 (Version 2)
Quarter: 2018Q2

REPORT INFORMATION
  Report Type: Spontaneous
  Country: US (occurrence: US)
  Receive Date: 20160617
  Receipt Date: 20180523
  Transmission Date: 20180711
  Serious: Yes (Hospitalization, Other)
  Sender: FDA-Public Use
  Company Number: US-ASTRAZENECA-2016SE64990

PATIENT
  Age: 786 Month
  Sex: Female
  Weight: 55.3 kg

DRUGS (3)
  1. SYMBICORT [Suspect]
     Active Substance: BUDESONIDE\FORMOTEROL FUMARATE DIHYDRATE
     Indication: ASTHMA
     Dosage: 160/4.5 MCG, TWO PUFFS TWICE DAILY
     Route: 055
     Dates: start: 201605
  2. XOPENEX [Concomitant]
     Active Substance: LEVALBUTEROL HYDROCHLORIDE
     Indication: PROPHYLAXIS
     Dosage: 45.0UG AS REQUIRED
     Route: 055
     Dates: start: 2006
  3. ASPIRIN. [Concomitant]
     Active Substance: ASPIRIN
     Route: 048
     Dates: start: 2009

REACTIONS (13)
  - Upper respiratory tract infection [Unknown]
  - Blood glucose increased [Unknown]
  - Contusion [Not Recovered/Not Resolved]
  - Carotid artery disease [Recovered/Resolved]
  - Head injury [Recovered/Resolved]
  - Device issue [Unknown]
  - Diabetic neuropathy [Not Recovered/Not Resolved]
  - Myocardial infarction [Recovered/Resolved]
  - Intentional product misuse [Unknown]
  - Grip strength decreased [Not Recovered/Not Resolved]
  - Weight decreased [Unknown]
  - Stress [Not Recovered/Not Resolved]
  - Underdose [Unknown]

NARRATIVE: CASE EVENT DATE: 201605
